FAERS Safety Report 8912126 (Version 2)
Quarter: 2012Q4

REPORT INFORMATION
  Report Type: 
  Country: FR (occurrence: FR)
  Receive Date: 20121116
  Receipt Date: 20121126
  Transmission Date: 20130627
  Serious: Yes (Death, Hospitalization, Other)
  Sender: FDA-Public Use
  Company Number: FR-PFIZER INC-2012283639

PATIENT
  Age: 48 Year
  Sex: Female

DRUGS (9)
  1. SOLU-MEDROL [Suspect]
     Indication: NON-HODGKIN^S LYMPHOMA UNSPECIFIED HISTOLOGY AGGRESSIVE REFRACTORY
     Dosage: 100 mg, 1x/day
     Route: 042
     Dates: start: 20120823, end: 20120828
  2. GEMCITABINE [Suspect]
     Indication: NON-HODGKIN^S LYMPHOMA UNSPECIFIED HISTOLOGY AGGRESSIVE REFRACTORY
     Dosage: 1200 mg, 1x/day
     Route: 042
     Dates: start: 20120823, end: 20120825
  3. HOLOXAN [Suspect]
     Indication: NON-HODGKIN^S LYMPHOMA UNSPECIFIED HISTOLOGY AGGRESSIVE REFRACTORY
     Dosage: 3000 mg, 1x/day
     Route: 042
     Dates: start: 20120823, end: 20120828
  4. UROMITEXAN [Suspect]
     Indication: SECONDARY PREVENTION
     Dosage: 3000 mg, 1x/day
     Route: 042
     Dates: start: 20120823, end: 20120828
  5. PRIMPERAN [Suspect]
     Indication: SECONDARY PREVENTION
     Dosage: 80 mg, 1x/day
     Route: 042
     Dates: start: 20120823, end: 20120828
  6. ZOPHREN [Suspect]
     Dosage: 8 mg, 1x/day
     Route: 041
     Dates: start: 20120823, end: 20120828
  7. VINORELBINE [Suspect]
     Indication: NON-HODGKIN^S LYMPHOMA UNSPECIFIED HISTOLOGY AGGRESSIVE REFRACTORY
     Dosage: 30 mg, 1x/day
     Route: 042
     Dates: start: 20120823, end: 20120825
  8. NEURONTIN [Concomitant]
     Indication: NEUROGENIC PAIN
     Dosage: 250 mg, 2x/day
     Route: 048
  9. MORPHINE CHLORHYDRATE [Concomitant]
     Indication: CANCER PAIN
     Dosage: 140 mg, 1x/day
     Route: 041

REACTIONS (2)
  - Bacterial sepsis [Fatal]
  - Encephalopathy [Recovered/Resolved]
